FAERS Safety Report 8268934-8 (Version None)
Quarter: 2012Q2

REPORT INFORMATION
  Report Type: 
  Country: None (occurrence: None)
  Receive Date: 20120409
  Receipt Date: 20120402
  Transmission Date: 20120825
  Serious: Yes (Disabling)
  Sender: FDA-Public Use
  Company Number: GB-TEVA-325384ISR

PATIENT
  Age: 47 Year
  Sex: Male
  Weight: 96.9 kg

DRUGS (28)
  1. PROCTOSEDYL [Concomitant]
     Dates: start: 20110125
  2. BISOPROLOL FUMARATE [Concomitant]
     Dates: start: 20111110
  3. LAXIDO [Concomitant]
     Dates: start: 20111110
  4. OMEPRAZOLE [Concomitant]
     Dates: start: 20111110, end: 20111208
  5. PROCTOSEDYL [Concomitant]
     Dates: start: 20111025, end: 20111209
  6. BENDROFLUMETHIAZIDE [Concomitant]
     Dates: start: 20111110, end: 20111208
  7. ACETAMINOPHEN [Concomitant]
     Dates: start: 20111110
  8. CINCHOCAINE [Concomitant]
     Dates: start: 20111125, end: 20111205
  9. ASPIRIN [Concomitant]
     Dates: start: 20111110, end: 20111208
  10. SIMVASTATIN [Concomitant]
     Dates: start: 20111110, end: 20111208
  11. OTOMIZE [Concomitant]
     Dates: start: 20111114, end: 20111205
  12. SENNA [Concomitant]
     Dates: start: 20111130, end: 20111228
  13. GLYCERYL TRINITRATE [Concomitant]
     Dates: start: 20110125
  14. BISOPROLOL FUMARATE [Concomitant]
     Dates: start: 20111110, end: 20111208
  15. BENDROFLUMETHIAZIDE [Concomitant]
     Dates: start: 20111110
  16. ASPIRIN [Concomitant]
     Dates: start: 20111110
  17. RAMIPRIL [Concomitant]
     Dates: start: 20111110, end: 20111208
  18. GLYCERYL TRINITRATE [Concomitant]
     Dates: start: 20111025, end: 20111209
  19. SIMVASTATIN [Concomitant]
     Dates: start: 20111110
  20. LAXIDO [Concomitant]
     Dates: start: 20111213, end: 20120208
  21. GLYCEROL 2.6% [Concomitant]
     Dates: start: 20111207, end: 20111209
  22. BETAMETHASONE VALERATE [Concomitant]
     Dates: start: 20120117, end: 20120214
  23. OMEPRAZOLE [Concomitant]
     Dates: start: 20111110
  24. AMLODIPINE [Suspect]
     Dates: start: 20120117, end: 20120131
  25. VALPROATE SODIUM [Concomitant]
     Dates: start: 20111110, end: 20111208
  26. ACETAMINOPHEN [Concomitant]
     Dates: start: 20111110, end: 20111208
  27. VALPROATE SODIUM [Concomitant]
     Dates: start: 20111110
  28. RAMIPRIL [Concomitant]
     Dates: start: 20111110

REACTIONS (1)
  - EPILEPSY [None]
